FAERS Safety Report 13607635 (Version 1)
Quarter: 2017Q2

REPORT INFORMATION
  Report Type: Spontaneous
  Country: IN (occurrence: IN)
  Receive Date: 20170602
  Receipt Date: 20170602
  Transmission Date: 20170830
  Serious: Yes (Other)
  Sender: FDA-Public Use
  Company Number: IN-PFIZER INC-2017234875

PATIENT
  Age: 21 Year
  Sex: Male

DRUGS (4)
  1. BUPIVACAINE. [Suspect]
     Active Substance: BUPIVACAINE
     Dosage: 15ML OF 0.5% BUPIVACAINE
     Route: 065
  2. ADRENALINE [Suspect]
     Active Substance: EPINEPHRINE
     Dosage: WITH 15ML OF 2% LIDOCAINE
     Route: 065
  3. LIGNOCAINE [Suspect]
     Active Substance: LIDOCAINE HYDROCHLORIDE
     Indication: ANAESTHESIA
     Dosage: 15ML OF 2% LIDOCAINE WITH EPINEPHRINE
     Route: 065
  4. LIGNOCAINE [Suspect]
     Active Substance: LIDOCAINE HYDROCHLORIDE
     Dosage: 2ML. CONC. 2%
     Route: 065

REACTIONS (2)
  - Horner^s syndrome [Recovered/Resolved]
  - Dysphonia [Recovered/Resolved]
